FAERS Safety Report 26144122 (Version 2)
Quarter: 2025Q4

REPORT INFORMATION
  Report Type: Spontaneous
  Country: EU (occurrence: EU)
  Receive Date: 20251211
  Receipt Date: 20251212
  Transmission Date: 20260119
  Serious: Yes (Hospitalization, Other)
  Sender: RANBAXY
  Company Number: EU-MINISAL02-1055979

PATIENT
  Age: 18 Year
  Sex: Male

DRUGS (4)
  1. PREGABALIN [Suspect]
     Active Substance: PREGABALIN
     Indication: Drug abuse
     Dosage: 75 MILLIGRAM IN TOTAL
     Route: 048
     Dates: start: 20250827, end: 20250827
  2. LORAZEPAM [Suspect]
     Active Substance: LORAZEPAM
     Indication: Drug abuse
     Dosage: UNK,!/4 BOTTLE/TOTAL
     Route: 048
     Dates: start: 20250827, end: 20250827
  3. TAVOR (LORAZEPAM) [Suspect]
     Active Substance: LORAZEPAM
     Indication: Drug abuse
     Dosage: 2 CPR 1MG /TOTALE
     Route: 048
     Dates: start: 20250827, end: 20250827
  4. SEROQUEL [Suspect]
     Active Substance: QUETIAPINE FUMARATE
     Indication: Drug abuse
     Dosage: 400 MILLIGRAM IN TOTAL
     Route: 048
     Dates: start: 20250827, end: 20250827

REACTIONS (3)
  - Drug abuse [Recovered/Resolved]
  - Cognitive disorder [Recovered/Resolved]
  - Intentional product misuse [Recovered/Resolved]

NARRATIVE: CASE EVENT DATE: 20250827
